FAERS Safety Report 9839300 (Version 3)
Quarter: 2014Q1

REPORT INFORMATION
  Report Type: Report from Study
  Country: FR (occurrence: FR)
  Receive Date: 20140123
  Receipt Date: 20140131
  Transmission Date: 20141002
  Serious: Yes (Death, Life-Threatening, Hospitalization)
  Sender: FDA-Public Use
  Company Number: PHHO2012FR009973

PATIENT
  Sex: 0

DRUGS (3)
  1. AFINITOR [Suspect]
     Indication: NEOPLASM MALIGNANT
     Dosage: 5 MG, QD
     Dates: start: 20110920, end: 20120627
  2. AXITINIB [Suspect]
     Indication: NEOPLASM MALIGNANT
     Dosage: 6 MG, 6QD
     Dates: start: 20110913, end: 20120627
  3. EXFORGE [Concomitant]
     Dosage: UNK
     Dates: start: 201205, end: 201206

REACTIONS (3)
  - Cardiomyopathy [Fatal]
  - Ejection fraction decreased [Not Recovered/Not Resolved]
  - Acute pulmonary oedema [Recovered/Resolved]
